FAERS Safety Report 9785772 (Version 3)
Quarter: 2014Q2

REPORT INFORMATION
  Report Type: Spontaneous
  Country: US (occurrence: US)
  Receive Date: 20131227
  Receipt Date: 20140523
  Transmission Date: 20141212
  Serious: Yes (Other)
  Sender: FDA-Public Use
  Company Number: US-BAYER-2013-156922

PATIENT
  Age: 48 Year
  Sex: Female
  Weight: 62 kg

DRUGS (2)
  1. MIRENA [Suspect]
     Indication: CONTRACEPTION
     Dosage: 20 MCG/24HR, CONT
     Route: 015
     Dates: start: 20121219, end: 20130301
  2. MIRENA [Suspect]
     Indication: MENORRHAGIA

REACTIONS (4)
  - Device dislocation [Not Recovered/Not Resolved]
  - Genital haemorrhage [None]
  - Pain [None]
  - Medical device discomfort [None]
